FAERS Safety Report 23184715 (Version 1)
Quarter: 2023Q4

REPORT INFORMATION
  Report Type: Report from Study
  Country: GR (occurrence: GR)
  Receive Date: 20231115
  Receipt Date: 20231115
  Transmission Date: 20240110
  Serious: Yes (Hospitalization)
  Sender: FDA-Public Use
  Company Number: GR-ABBVIE-5473946

PATIENT
  Age: 73 Year
  Sex: Female

DRUGS (2)
  1. CARBIDOPA\LEVODOPA [Suspect]
     Active Substance: CARBIDOPA\LEVODOPA
     Indication: Parkinson^s disease
     Dosage: MORNING DOSE: 10.0ML; CONTINUOUS RATE: 2.0ML/H; EXTRA DOSE: 1.3ML
     Route: 050
     Dates: start: 20220510, end: 20231025
  2. CARBIDOPA\LEVODOPA [Suspect]
     Active Substance: CARBIDOPA\LEVODOPA

REACTIONS (8)
  - Discoloured vomit [Unknown]
  - Intentional device misuse [Recovered/Resolved]
  - Device dislocation [Recovered/Resolved]
  - Mental disorder [Not Recovered/Not Resolved]
  - Impaired gastric emptying [Unknown]
  - Stoma site haemorrhage [Unknown]
  - Stoma site ulcer [Not Recovered/Not Resolved]
  - Device issue [Recovered/Resolved]

NARRATIVE: CASE EVENT DATE: 20231025
